FAERS Safety Report 7226457-9 (Version None)
Quarter: 2011Q1

REPORT INFORMATION
  Report Type: 
  Country: None (occurrence: None)
  Receive Date: 20110114
  Receipt Date: 20110111
  Transmission Date: 20110831
  Serious: Yes (Death)
  Sender: FDA-Public Use
  Company Number: PHHY2011US02310

PATIENT
  Sex: Male

DRUGS (4)
  1. PULMOZYME [Concomitant]
  2. TEMODAR [Concomitant]
  3. TOBI [Suspect]
     Dosage: (28 DAYS OFF, 28 DAYS ON)
  4. IRINOTECAN [Concomitant]
     Dosage: UNK

REACTIONS (1)
  - DEATH [None]
